FAERS Safety Report 21578309 (Version 2)
Quarter: 2023Q4

REPORT INFORMATION
  Report Type: Spontaneous
  Country: CA (occurrence: CA)
  Receive Date: 20221110
  Receipt Date: 20231122
  Transmission Date: 20240110
  Serious: Yes (Hospitalization, Other)
  Sender: FDA-Public Use
  Company Number: CA-PFIZER INC-202201286867

PATIENT
  Age: 79 Year
  Sex: Female
  Weight: 57 kg

DRUGS (13)
  1. ADRIAMYCIN [Suspect]
     Active Substance: DOXORUBICIN HYDROCHLORIDE
     Indication: Breast cancer
     Dosage: 98 MG, SINGLE
     Route: 042
  2. CYTOXAN [Suspect]
     Active Substance: CYCLOPHOSPHAMIDE
     Indication: Breast cancer
     Dosage: 975 MG, SINGLE
     Route: 042
  3. AMLODIPINE [Concomitant]
     Active Substance: AMLODIPINE BESYLATE
  4. DEXAMETHASONE [Concomitant]
     Active Substance: DEXAMETHASONE
  5. EMEND [Concomitant]
     Active Substance: APREPITANT
  6. FILGRASTIM [Concomitant]
     Active Substance: FILGRASTIM
  7. HYDROCHLOROTHIAZIDE [Concomitant]
     Active Substance: HYDROCHLOROTHIAZIDE
  8. LEVOTHYROXINE [Concomitant]
     Active Substance: LEVOTHYROXINE
  9. METOPROLOL [Concomitant]
     Active Substance: METOPROLOL
     Route: 065
  10. NYSTATIN [Concomitant]
     Active Substance: NYSTATIN
  11. ONDANSETRON [Concomitant]
     Active Substance: ONDANSETRON
  12. PANTOPRAZOLE [Concomitant]
     Active Substance: PANTOPRAZOLE
  13. RISPERIDONE [Concomitant]
     Active Substance: RISPERIDONE

REACTIONS (1)
  - Febrile neutropenia [Recovered/Resolved]
